FAERS Safety Report 13833949 (Version 1)
Quarter: 2017Q3

REPORT INFORMATION
  Report Type: Spontaneous
  Country: GB (occurrence: GB)
  Receive Date: 20170804
  Receipt Date: 20170804
  Transmission Date: 20171127
  Serious: Yes (Hospitalization)
  Sender: FDA-Public Use
  Company Number: GB-LINDE GAS NORTH AMERICA LLC, LINDE GAS PUERTO RICO INC.-GB-LHC-2017166

PATIENT
  Age: 43 Year
  Sex: Male

DRUGS (4)
  1. CARBON DIOXIDE (GENERIC) [Suspect]
     Active Substance: CARBON DIOXIDE
     Route: 054
     Dates: start: 20170714
  2. BUSCOPAN [Suspect]
     Active Substance: BUTYLSCOPOLAMINE BROMIDE
     Indication: COMPUTERISED TOMOGRAM INTESTINE
     Route: 042
     Dates: start: 20170714, end: 20170714
  3. NIOPAM [Suspect]
     Active Substance: IOPAMIDOL
     Indication: COMPUTERISED TOMOGRAM INTESTINE
     Route: 042
     Dates: start: 20170714, end: 20170714
  4. PICOLAX (ANHYDROUS CITRIC ACID\MAGNESIUM OXIDE\SODIUM PICOSULFATE) [Suspect]
     Active Substance: ANHYDROUS CITRIC ACID\MAGNESIUM OXIDE\SODIUM PICOSULFATE

REACTIONS (4)
  - Nausea [Recovered/Resolved]
  - Neck pain [Recovered/Resolved]
  - Retching [Recovered/Resolved]
  - Erythema [Recovered/Resolved]

NARRATIVE: CASE EVENT DATE: 20170714
